FAERS Safety Report 13889992 (Version 3)
Quarter: 2017Q4

REPORT INFORMATION
  Report Type: Report from Study
  Country: TH (occurrence: TH)
  Receive Date: 20170822
  Receipt Date: 20171027
  Transmission Date: 20180320
  Serious: Yes (Other)
  Sender: FDA-Public Use
  Company Number: TH-VIIV HEALTHCARE LIMITED-TH2017GSK127601

PATIENT
  Age: 38 Year
  Sex: Male
  Weight: 53 kg

DRUGS (4)
  1. ABACAVIR SULPHATE [Suspect]
     Active Substance: ABACAVIR
     Indication: HIV INFECTION
     Dosage: UNK
     Dates: start: 20170131
  2. LAMIVUDINE. [Suspect]
     Active Substance: LAMIVUDINE
     Indication: HIV INFECTION
     Dosage: UNK
     Dates: start: 20170131
  3. DOLUTEGRAVIR [Suspect]
     Active Substance: DOLUTEGRAVIR
     Indication: HIV INFECTION
     Dosage: UNK
     Dates: start: 20170405, end: 20170816
  4. RILPIVIRINE [Concomitant]
     Active Substance: RILPIVIRINE
     Dosage: UNK
     Dates: start: 20170816

REACTIONS (1)
  - Hepatitis C [Not Recovered/Not Resolved]

NARRATIVE: CASE EVENT DATE: 20170815
